FAERS Safety Report 6522478-X (Version None)
Quarter: 2009Q4

REPORT INFORMATION
  Report Type: 
  Country: None (occurrence: None)
  Receive Date: 20091230
  Receipt Date: 20091228
  Transmission Date: 20100525
  Serious: No
  Sender: FDA-Public Use
  Company Number: B0620884A

PATIENT
  Age: 24 Year
  Sex: Female

DRUGS (2)
  1. RELENZA [Suspect]
     Indication: H1N1 INFLUENZA
     Route: 055
     Dates: start: 20091119, end: 20091119
  2. TAMIFLU [Concomitant]
     Indication: H1N1 INFLUENZA
     Route: 065
     Dates: start: 20091117, end: 20091118

REACTIONS (6)
  - BRONCHOSPASM [None]
  - DRUG EXPOSURE DURING PREGNANCY [None]
  - DRUG HYPERSENSITIVITY [None]
  - DYSPNOEA [None]
  - SWELLING FACE [None]
  - WHEEZING [None]
